FAERS Safety Report 11579842 (Version 1)
Quarter: 2015Q3

REPORT INFORMATION
  Report Type: Spontaneous
  Country: US (occurrence: US)
  Receive Date: 20150916
  Receipt Date: 20150916
  Transmission Date: 20151125
  Serious: No
  Sender: FDA-Public Use
  Company Number: US-ELI_LILLY_AND_COMPANY-US200805002570

PATIENT
  Age: 64 Year
  Sex: Female

DRUGS (2)
  1. FORTEO [Suspect]
     Active Substance: TERIPARATIDE
     Indication: OSTEOPOROSIS
     Dates: start: 200705, end: 2007
  2. FORTEO [Suspect]
     Active Substance: TERIPARATIDE
     Dates: start: 20080506

REACTIONS (7)
  - Hypersensitivity [Unknown]
  - Dehydration [Unknown]
  - Myalgia [Unknown]
  - Sinus disorder [Unknown]
  - Bone pain [Unknown]
  - Muscle spasms [Recovered/Resolved]
  - Pain [Unknown]

NARRATIVE: CASE EVENT DATE: 20080512
